FAERS Safety Report 14413646 (Version 3)
Quarter: 2018Q2

REPORT INFORMATION
  Report Type: Report from Study
  Country: US (occurrence: US)
  Receive Date: 20180119
  Receipt Date: 20180521
  Transmission Date: 20180711
  Serious: Yes (Hospitalization)
  Sender: FDA-Public Use
  Company Number: US-ACTELION-A-NJ2017-161341

PATIENT
  Age: 64 Year
  Sex: Female
  Weight: 72.11 kg

DRUGS (9)
  1. UPTRAVI [Suspect]
     Active Substance: SELEXIPAG
     Indication: PULMONARY ARTERIAL HYPERTENSION
     Dosage: 800 MCG, UNK
     Route: 048
  2. UPTRAVI [Suspect]
     Active Substance: SELEXIPAG
     Dosage: 800 MCG, BID
     Route: 048
  3. UPTRAVI [Suspect]
     Active Substance: SELEXIPAG
     Dosage: 200 MCG, BID
     Route: 048
     Dates: end: 2017
  4. REVATIO [Concomitant]
     Active Substance: SILDENAFIL CITRATE
  5. TRACLEER [Suspect]
     Active Substance: BOSENTAN
     Indication: PULMONARY ARTERIAL HYPERTENSION
     Dosage: 125 MG, BID
     Route: 048
  6. ADCIRCA [Concomitant]
     Active Substance: TADALAFIL
  7. UPTRAVI [Suspect]
     Active Substance: SELEXIPAG
     Dosage: 1000 MCG, BID
     Route: 048
  8. COUMADIN [Concomitant]
     Active Substance: WARFARIN SODIUM
  9. LETAIRIS [Concomitant]
     Active Substance: AMBRISENTAN

REACTIONS (13)
  - Palpitations [Unknown]
  - Bone pain [Unknown]
  - Myalgia [Unknown]
  - Arthralgia [Unknown]
  - Nausea [Unknown]
  - Flushing [Unknown]
  - Diarrhoea [Unknown]
  - Headache [Unknown]
  - Gait inability [Unknown]
  - Asthenia [Unknown]
  - Malaise [Recovered/Resolved]
  - Balance disorder [Unknown]
  - Abdominal pain upper [Unknown]
